FAERS Safety Report 6407229-1 (Version None)
Quarter: 2009Q4

REPORT INFORMATION
  Report Type: 
  Country: None (occurrence: None)
  Receive Date: 20091020
  Receipt Date: 20091013
  Transmission Date: 20100525
  Serious: Yes (Other)
  Sender: FDA-Public Use
  Company Number: JP-B.I. PHARMACEUTICALS,INC./RIDGEFIELD-2009-BP-05159YA

PATIENT
  Sex: Male
  Weight: 46.5 kg

DRUGS (7)
  1. TAMSULOSIN HYDROCHLORIDE [Suspect]
     Indication: BENIGN PROSTATIC HYPERPLASIA
     Route: 048
     Dates: start: 20071031, end: 20090313
  2. SOLIFENACIN [Suspect]
     Indication: HYPERTONIC BLADDER
     Route: 048
     Dates: start: 20090313, end: 20090313
  3. ISOSORBIDE MONONITRATE [Suspect]
     Indication: ANGINA PECTORIS
     Dosage: 40 MG
     Route: 048
  4. CONIEL (BENIDIPINE HYDROCHLORIDE) [Suspect]
     Indication: HYPERTENSION
     Dosage: 4 MG
     Route: 048
  5. ASPIRIN [Concomitant]
  6. LEVOFLOXACIN [Concomitant]
     Route: 031
  7. FLUMETHOLON (FLUOROMETHOLONE) [Concomitant]
     Route: 031

REACTIONS (1)
  - LOSS OF CONSCIOUSNESS [None]
